FAERS Safety Report 25529203 (Version 1)
Quarter: 2025Q3

REPORT INFORMATION
  Report Type: Spontaneous
  Country: US (occurrence: US)
  Receive Date: 20250708
  Receipt Date: 20250708
  Transmission Date: 20251020
  Serious: Yes (Other)
  Sender: MYLAN
  Company Number: US-MYLANLABS-2025M1056441

PATIENT
  Age: 57 Year
  Sex: Male

DRUGS (24)
  1. OXALIPLATIN [Suspect]
     Active Substance: OXALIPLATIN
     Indication: Ductal adenocarcinoma of pancreas
  2. OXALIPLATIN [Suspect]
     Active Substance: OXALIPLATIN
     Route: 065
  3. OXALIPLATIN [Suspect]
     Active Substance: OXALIPLATIN
     Route: 065
  4. OXALIPLATIN [Suspect]
     Active Substance: OXALIPLATIN
  5. LEUCOVORIN CALCIUM [Suspect]
     Active Substance: LEUCOVORIN CALCIUM
     Indication: Ductal adenocarcinoma of pancreas
  6. LEUCOVORIN CALCIUM [Suspect]
     Active Substance: LEUCOVORIN CALCIUM
     Route: 065
  7. LEUCOVORIN CALCIUM [Suspect]
     Active Substance: LEUCOVORIN CALCIUM
     Route: 065
  8. LEUCOVORIN CALCIUM [Suspect]
     Active Substance: LEUCOVORIN CALCIUM
  9. GEMCITABINE [Suspect]
     Active Substance: GEMCITABINE
     Indication: Ductal adenocarcinoma of pancreas
  10. GEMCITABINE [Suspect]
     Active Substance: GEMCITABINE
     Route: 065
  11. GEMCITABINE [Suspect]
     Active Substance: GEMCITABINE
     Route: 065
  12. GEMCITABINE [Suspect]
     Active Substance: GEMCITABINE
  13. FLUOROURACIL [Suspect]
     Active Substance: FLUOROURACIL
     Indication: Ductal adenocarcinoma of pancreas
  14. FLUOROURACIL [Suspect]
     Active Substance: FLUOROURACIL
     Route: 065
  15. FLUOROURACIL [Suspect]
     Active Substance: FLUOROURACIL
     Route: 065
  16. FLUOROURACIL [Suspect]
     Active Substance: FLUOROURACIL
  17. IRINOTECAN [Suspect]
     Active Substance: IRINOTECAN
     Indication: Ductal adenocarcinoma of pancreas
  18. IRINOTECAN [Suspect]
     Active Substance: IRINOTECAN
     Route: 065
  19. IRINOTECAN [Suspect]
     Active Substance: IRINOTECAN
     Route: 065
  20. IRINOTECAN [Suspect]
     Active Substance: IRINOTECAN
  21. PACLITAXEL [Suspect]
     Active Substance: PACLITAXEL
     Indication: Ductal adenocarcinoma of pancreas
  22. PACLITAXEL [Suspect]
     Active Substance: PACLITAXEL
     Route: 065
  23. PACLITAXEL [Suspect]
     Active Substance: PACLITAXEL
     Route: 065
  24. PACLITAXEL [Suspect]
     Active Substance: PACLITAXEL

REACTIONS (2)
  - Disease progression [Unknown]
  - Drug ineffective [Unknown]
